FAERS Safety Report 8487735-9 (Version None)
Quarter: 2012Q3

REPORT INFORMATION
  Report Type: 
  Country: None (occurrence: None)
  Receive Date: 20120705
  Receipt Date: 20120625
  Transmission Date: 20120928
  Serious: Yes (Hospitalization)
  Sender: FDA-Public Use
  Company Number: IT-EISAI INC-E7389-02595-SPO-IT

PATIENT
  Sex: Female

DRUGS (1)
  1. HALAVEN [Suspect]
     Route: 041
     Dates: start: 20120416, end: 20120416

REACTIONS (7)
  - FACE OEDEMA [None]
  - MUCOSAL INFLAMMATION [None]
  - TREMOR [None]
  - DYSPHAGIA [None]
  - OEDEMA PERIPHERAL [None]
  - NEUTROPENIA [None]
  - LEUKOPENIA [None]
